FAERS Safety Report 8589441-9 (Version None)
Quarter: 2012Q3

REPORT INFORMATION
  Report Type: 
  Country: None (occurrence: None)
  Receive Date: 20120813
  Receipt Date: 20120806
  Transmission Date: 20120928
  Serious: Yes (Other)
  Sender: FDA-Public Use
  Company Number: AR-SANOFI-AVENTIS-2012SA056434

PATIENT
  Age: 61 Year
  Sex: Female

DRUGS (2)
  1. LANTUS [Suspect]
     Indication: TYPE 2 DIABETES MELLITUS
     Dosage: BID 40 UNITS IN THE MORNING AND 15UNITS IN THE AFTERNOON
     Route: 058
  2. APIDRA [Suspect]
     Indication: TYPE 2 DIABETES MELLITUS
     Dosage: DOSE:4 UNIT(S)
     Route: 058

REACTIONS (4)
  - HAEMORRHAGE [None]
  - OVARIAN CANCER [None]
  - UTERINE CANCER [None]
  - DRUG ADMINISTRATION ERROR [None]
